FAERS Safety Report 4983675-8 (Version None)
Quarter: 2006Q1

REPORT INFORMATION
  Report Type: 
  Country: None (occurrence: None)
  Receive Date: 20060227
  Receipt Date: 20050121
  Transmission Date: 20060701
  Serious: Yes (Disabling)
  Sender: FDA-Public Use
  Company Number: WAES 0501USA03465

PATIENT
  Age: 76 Year
  Sex: Male

DRUGS (5)
  1. ZOCOR [Suspect]
     Indication: BLOOD CHOLESTEROL INCREASED
     Dosage: 10 MG, DAILY, PO
     Route: 048
     Dates: start: 20030115, end: 20030526
  2. ZOCOR [Suspect]
     Indication: BLOOD CHOLESTEROL INCREASED
     Dosage: 10 MG, DAILY, PO
     Route: 048
     Dates: start: 20030803
  3. XALATAN [Concomitant]
  4. ASPIRIN [Concomitant]
  5. DIETARY SUPPLEMENT [Concomitant]

REACTIONS (1)
  - NEUROPATHY PERIPHERAL [None]
